FAERS Safety Report 8576162-1 (Version None)
Quarter: 2012Q3

REPORT INFORMATION
  Report Type: 
  Country: None (occurrence: None)
  Receive Date: 20120807
  Receipt Date: 20120801
  Transmission Date: 20120928
  Serious: Yes (Other)
  Sender: FDA-Public Use
  Company Number: US-PFIZER INC-2012187431

PATIENT
  Age: 49 Year
  Sex: Female

DRUGS (3)
  1. ZOMIG [Suspect]
     Dosage: UNK
  2. RELPAX [Suspect]
     Dosage: UNK
  3. IMITREX [Suspect]
     Dosage: UNK

REACTIONS (3)
  - DRUG HYPERSENSITIVITY [None]
  - MIGRAINE [None]
  - SUPRAVENTRICULAR TACHYCARDIA [None]
